FAERS Safety Report 8903333 (Version 2)
Quarter: 2012Q4

REPORT INFORMATION
  Report Type: 
  Country: US (occurrence: US)
  Receive Date: 20121111
  Receipt Date: 20121203
  Transmission Date: 20130627
  Serious: Yes (Other)
  Sender: FDA-Public Use
  Company Number: US-AMGEN-USASP2012071119

PATIENT
  Age: 60 Year
  Sex: Female
  Weight: 43.54 kg

DRUGS (27)
  1. PROLIA [Suspect]
     Indication: OSTEOPOROSIS
     Dosage: 60 mg, q6mo
     Route: 058
     Dates: start: 201009
  2. PROCRIT [Concomitant]
     Dosage: 2500 unit, 2 times/wk
     Route: 058
  3. QUINACRINE [Concomitant]
     Dosage: 100 mg, qd
     Route: 048
  4. HUMIRA [Concomitant]
     Dosage: 40 mg, qwk
     Route: 058
  5. LIPITOR [Concomitant]
     Dosage: 10 mg, qd
     Route: 048
  6. IMURAN                             /00001501/ [Concomitant]
     Dosage: 50 mg, qd
     Route: 048
  7. DESIPRAMINA [Concomitant]
     Dosage: 15 mg, qd
     Route: 048
  8. VITAMIN D /00107901/ [Concomitant]
     Dosage: 50000 IU, qwk
     Route: 048
  9. ESTRACE [Concomitant]
     Dosage: 0.5 mg, bid
     Route: 048
  10. GLUCOSAMINE HYDROCHLORIDE [Concomitant]
     Dosage: 1500 mg, bid
     Route: 048
  11. MOBIC [Concomitant]
     Dosage: 7.5 mg, bid
     Route: 048
  12. METHYLTESTOSTERON [Concomitant]
     Dosage: 0.05 mg, qd
     Route: 048
  13. ACEON [Concomitant]
     Dosage: 4 mg, qd
     Route: 048
  14. PREDNISONE [Concomitant]
     Dosage: 5 mg, qd
     Route: 048
  15. ACIPHEX [Concomitant]
     Dosage: 20 mg, qd
     Route: 048
  16. RITUXAN [Concomitant]
     Dosage: 10 mg/ml, per chemo regim
     Route: 042
  17. RITUXAN [Concomitant]
     Dosage: 750 mg, per chemo regim
     Route: 042
  18. TOPAMAX [Concomitant]
     Dosage: 12.5 mg, qd
     Route: 048
  19. DHEA [Concomitant]
     Dosage: 7.5 mg, qd
     Route: 048
  20. GAMMAGLOBULIN [Concomitant]
     Dosage: 55 mg, q3wk
     Route: 042
  21. MAGNESIUM [Concomitant]
     Dosage: 400 mg, bid
     Route: 048
  22. MENTAX [Concomitant]
     Dosage: UNK UNK, bid
     Route: 048
  23. DIOVAN [Concomitant]
     Dosage: 160 mg, bid
     Route: 048
  24. ZOLPIDEM [Concomitant]
     Dosage: 10 mg, qhs
     Route: 048
  25. SOLUMEDROL [Concomitant]
     Dosage: 10 mg, q3wk
     Route: 042
  26. MICRO K [Concomitant]
     Dosage: 30 mEq, bid
  27. TOREMIFENE [Concomitant]
     Dosage: 60 mg, qd
     Dates: start: 201002, end: 201103

REACTIONS (3)
  - Compression fracture [Unknown]
  - Vertebroplasty [Unknown]
  - Rash [Unknown]
